FAERS Safety Report 4579642-9 (Version None)
Quarter: 2005Q1

REPORT INFORMATION
  Report Type: 
  Country: None (occurrence: None)
  Receive Date: 20050210
  Receipt Date: 20050203
  Transmission Date: 20050727
  Serious: Yes (Hospitalization)
  Sender: FDA-Public Use
  Company Number: MESA 2004-007

PATIENT
  Age: 75 Year
  Sex: Male

DRUGS (8)
  1. SALOFALK TABLETS [Suspect]
     Indication: COLITIS ULCERATIVE
     Dosage: 500 MG 2 TABLETS QID PO
     Route: 048
     Dates: start: 20040519, end: 20040626
  2. PLAVIX [Suspect]
  3. RISPERDAL [Concomitant]
  4. CORTENEMA [Concomitant]
  5. HYDROCHLOROTHIAZIDE [Concomitant]
  6. DESYREL [Concomitant]
  7. SYNTROID (LEVOTHYROXINE SODIUM) [Concomitant]
  8. SALOFALK ENEMA [Concomitant]

REACTIONS (7)
  - ACUTE PULMONARY OEDEMA [None]
  - AGRANULOCYTOSIS [None]
  - CARDIOGENIC SHOCK [None]
  - DELIRIUM [None]
  - INFECTION [None]
  - MYOCARDIAL INFARCTION [None]
  - NEUTROPENIA [None]
